FAERS Safety Report 5341999-9 (Version None)
Quarter: 2007Q2

REPORT INFORMATION
  Report Type: 
  Country: None (occurrence: None)
  Receive Date: 20070412
  Receipt Date: 20070313
  Transmission Date: 20071010
  Serious: Yes (Other)
  Sender: FDA-Public Use
  Company Number: US-2007-002271

PATIENT
  Age: 13 Year
  Sex: Female
  Weight: 48 kg

DRUGS (1)
  1. YAZ [Suspect]
     Dosage: 1 TAB(S), 1X/DAY, ORAL
     Route: 048
     Dates: start: 20070114, end: 20070118

REACTIONS (5)
  - ANXIETY [None]
  - DIZZINESS [None]
  - MIGRAINE [None]
  - PAIN IN EXTREMITY [None]
  - PANIC ATTACK [None]
